FAERS Safety Report 23790303 (Version 2)
Quarter: 2024Q2

REPORT INFORMATION
  Report Type: Report from Study
  Country: CZ (occurrence: CZ)
  Receive Date: 20240427
  Receipt Date: 20240619
  Transmission Date: 20240715
  Serious: Yes (Other)
  Sender: FDA-Public Use
  Company Number: CZ-CELLTRION INC.-2024CZ009356

PATIENT

DRUGS (2)
  1. INFLIXIMAB-DYYB [Suspect]
     Active Substance: INFLIXIMAB-DYYB
     Indication: Colitis ulcerative
     Dosage: UNK
     Route: 058
  2. INFLIXIMAB-DYYB [Suspect]
     Active Substance: INFLIXIMAB-DYYB
     Dosage: 240 MG/KG
     Route: 058
     Dates: end: 20240524

REACTIONS (5)
  - Proctalgia [Recovering/Resolving]
  - Skin disorder [Recovering/Resolving]
  - Pyrexia [Recovering/Resolving]
  - Loss of therapeutic response [Unknown]
  - Overdose [Unknown]

NARRATIVE: CASE EVENT DATE: 20240125
